FAERS Safety Report 7959044-5 (Version None)
Quarter: 2011Q4

REPORT INFORMATION
  Report Type: 
  Country: None (occurrence: None)
  Receive Date: 20111206
  Receipt Date: 20111205
  Transmission Date: 20120403
  Serious: Yes (Other)
  Sender: FDA-Public Use
  Company Number: US-PFIZER INC-2011295657

PATIENT
  Sex: Female
  Weight: 90.703 kg

DRUGS (2)
  1. VENTOLIN [Concomitant]
     Indication: ASTHMA
     Dosage: UNK
  2. IBUPROFEN (ADVIL) [Suspect]
     Indication: PAIN
     Dosage: 200 MG, AS NEEDED
     Route: 048

REACTIONS (3)
  - SYSTEMIC LUPUS ERYTHEMATOSUS [None]
  - ANXIETY DISORDER [None]
  - PANIC DISORDER [None]
